FAERS Safety Report 11787052 (Version 1)
Quarter: 2015Q4

REPORT INFORMATION
  Report Type: Spontaneous
  Country: US (occurrence: US)
  Receive Date: 20151130
  Receipt Date: 20151130
  Transmission Date: 20160305
  Serious: No
  Sender: FDA-Public Use
  Company Number: US-FRI-1000072853

PATIENT
  Sex: Male
  Weight: 87 kg

DRUGS (7)
  1. NAMENDA [Suspect]
     Active Substance: MEMANTINE HYDROCHLORIDE
     Indication: AMNESIA
     Dates: start: 201109, end: 2011
  2. AMIODARONE [Suspect]
     Active Substance: AMIODARONE
     Indication: ATRIAL FIBRILLATION
     Dosage: 300 MG
     Route: 048
     Dates: start: 200301
  3. CRESTOR [Suspect]
     Active Substance: ROSUVASTATIN CALCIUM
     Dosage: 3 TIMES PER WEEK
     Dates: start: 201302, end: 20140407
  4. PLETAL [Concomitant]
     Active Substance: CILOSTAZOL
     Indication: ATRIAL FIBRILLATION
     Dates: start: 200308
  5. ARICEPT [Suspect]
     Active Substance: DONEPEZIL HYDROCHLORIDE
     Dosage: 10 MG
     Dates: start: 20100903
  6. CRESTOR [Suspect]
     Active Substance: ROSUVASTATIN CALCIUM
     Dosage: 10 MG
     Dates: start: 200308, end: 201302
  7. ARICEPT [Suspect]
     Active Substance: DONEPEZIL HYDROCHLORIDE
     Indication: AMNESIA
     Dosage: 5 MG
     Dates: start: 200812, end: 20100902

REACTIONS (4)
  - Dyspnoea [Recovered/Resolved]
  - Off label use [Recovered/Resolved]
  - Chest pain [Recovered/Resolved]
  - Dizziness [Recovered/Resolved]

NARRATIVE: CASE EVENT DATE: 2011
